FAERS Safety Report 21211246 (Version 2)
Quarter: 2022Q4

REPORT INFORMATION
  Report Type: Other
  Country: SE (occurrence: SE)
  Receive Date: 20220815
  Receipt Date: 20221208
  Transmission Date: 20230113
  Serious: Yes (Other)
  Sender: FDA-Public Use
  Company Number: SE-CELLTRION INC.-2022SE012817

PATIENT

DRUGS (12)
  1. INFLIXIMAB [Suspect]
     Active Substance: INFLIXIMAB
     Indication: Psoriatic arthropathy
     Dosage: 200 MG
     Dates: start: 20190101, end: 20220601
  2. OMEPRAZOLE [Concomitant]
     Active Substance: OMEPRAZOLE
     Dosage: UNK
     Dates: start: 20200414, end: 20220616
  3. UREA [Concomitant]
     Active Substance: UREA
     Dosage: AS NECESSARY
     Dates: start: 20171120
  4. Betolvex [Concomitant]
     Dosage: UNK
     Dates: start: 20211005
  5. Folacin [Concomitant]
     Dosage: UNK
     Dates: start: 20211005
  6. CETIRIZIN STADA [Concomitant]
     Dosage: UNK
     Dates: start: 20200414
  7. OZEMPIC [Concomitant]
     Active Substance: SEMAGLUTIDE
     Dosage: EVERY 7 DAYS
     Dates: start: 20210329
  8. BETAMETHASONE [Concomitant]
     Active Substance: BETAMETHASONE
     Dosage: UNK
     Dates: start: 20171120
  9. BRICANYL [Concomitant]
     Active Substance: TERBUTALINE SULFATE
     Dosage: AS NECESSARY
     Dates: start: 20201208
  10. RANITIDINE HYDROCHLORIDE [Concomitant]
     Active Substance: RANITIDINE HYDROCHLORIDE
     Dosage: UNK
     Dates: start: 20191112, end: 20220609
  11. SYMBICORT [Concomitant]
     Active Substance: BUDESONIDE\FORMOTEROL FUMARATE DIHYDRATE
     Dosage: UNK
     Dates: start: 20201228
  12. AMLODIPINE [Concomitant]
     Active Substance: AMLODIPINE BESYLATE
     Dosage: UNK
     Dates: start: 20171004

REACTIONS (1)
  - Psychotic disorder [Unknown]

NARRATIVE: CASE EVENT DATE: 20220401
